FAERS Safety Report 15687159 (Version 7)
Quarter: 2020Q1

REPORT INFORMATION
  Report Type: Report from Study
  Country: CO (occurrence: CO)
  Receive Date: 20181204
  Receipt Date: 20200106
  Transmission Date: 20200409
  Serious: Yes (Life-Threatening, Other)
  Sender: FDA-Public Use
  Company Number: PHHY2018CO173853

PATIENT
  Age: 46 Year
  Sex: Female
  Weight: 68 kg

DRUGS (2)
  1. AFINITOR [Suspect]
     Active Substance: EVEROLIMUS
     Indication: RENAL CELL CARCINOMA
     Dosage: 10 MG, QD
     Route: 048
     Dates: end: 201810
  2. AFINITOR [Suspect]
     Active Substance: EVEROLIMUS
     Indication: OVARIAN CYST
     Dosage: 10 MG, QD
     Route: 048
     Dates: start: 2018, end: 20191130

REACTIONS (11)
  - Hypertensive crisis [Recovered/Resolved]
  - Weight increased [Unknown]
  - Asthenia [Unknown]
  - Ovarian cancer [Recovered/Resolved]
  - Blood glucose increased [Unknown]
  - Vomiting [Unknown]
  - Hepatitis [Unknown]
  - Diarrhoea [Unknown]
  - General physical health deterioration [Unknown]
  - Malaise [Unknown]
  - Product use in unapproved indication [Unknown]

NARRATIVE: CASE EVENT DATE: 201810
